FAERS Safety Report 5382201-1 (Version None)
Quarter: 2007Q3

REPORT INFORMATION
  Report Type: 
  Country: None (occurrence: None)
  Receive Date: 20070709
  Receipt Date: 20070629
  Transmission Date: 20080115
  Serious: Yes (Other)
  Sender: FDA-Public Use
  Company Number: HQWYE869702JUL07

PATIENT
  Sex: Male
  Weight: 74.91 kg

DRUGS (1)
  1. EFFEXOR XR [Suspect]
     Indication: ANXIETY
     Route: 048
     Dates: start: 20070621

REACTIONS (9)
  - ABNORMAL BEHAVIOUR [None]
  - CONFUSIONAL STATE [None]
  - DISSOCIATION [None]
  - ERECTILE DYSFUNCTION [None]
  - EUPHORIC MOOD [None]
  - HOT FLUSH [None]
  - LOSS OF CONSCIOUSNESS [None]
  - SENSORY LOSS [None]
  - SPEECH DISORDER [None]
